FAERS Safety Report 8034511-7 (Version None)
Quarter: 2012Q1

REPORT INFORMATION
  Report Type: 
  Country: None (occurrence: None)
  Receive Date: 20120110
  Receipt Date: 20120104
  Transmission Date: 20120608
  Serious: Yes (Hospitalization)
  Sender: FDA-Public Use
  Company Number: US-PFIZER INC-2012001421

PATIENT
  Sex: Female
  Weight: 69 kg

DRUGS (12)
  1. BLINDED PLACEBO [Suspect]
     Indication: OSTEOPENIA
     Dosage: UNK
     Route: 042
     Dates: start: 20111010, end: 20111010
  2. TEMAZEPAM [Concomitant]
     Indication: INSOMNIA
     Dosage: 30 MG, 3X/DAY
     Route: 048
     Dates: start: 20080101
  3. BLINDED NO SUBJECT DRUG [Suspect]
     Indication: OSTEOPENIA
     Dosage: UNK
     Route: 042
     Dates: start: 20111010, end: 20111010
  4. FLAGYL [Concomitant]
     Dosage: 500 MG, EVERY 8 HOURS
     Route: 048
  5. VANCOMYCIN [Concomitant]
     Dosage: 250 MG, 4X/DAY
     Route: 048
  6. VOLTAREN [Concomitant]
     Indication: PAIN
     Dosage: 1%, PRN, GEL
     Route: 061
     Dates: start: 20090101
  7. ATENOLOL [Concomitant]
     Indication: HYPERTENSION
     Dosage: 25 MG, 1X/DAY
     Route: 048
     Dates: start: 20090701
  8. ACETAMINOPHEN [Concomitant]
     Indication: PAIN
     Dosage: 600 MG, AS NEEDED
     Route: 048
     Dates: start: 20080101
  9. BENICAR [Concomitant]
     Indication: HYPERTENSION
     Dosage: 40 MG, 1X/DAY
     Route: 048
     Dates: start: 20111031
  10. FLAGYL [Suspect]
     Indication: COLITIS
     Dosage: 500 MG, EVERY 12 HOURS
     Dates: start: 20111201
  11. BLINDED PF-04840082 [Suspect]
     Indication: OSTEOPENIA
     Dosage: UNK
     Route: 042
     Dates: start: 20111010, end: 20111010
  12. LISINOPRIL [Concomitant]
     Indication: HYPERTENSION
     Dosage: 20 MG, 1X/DAY
     Route: 048
     Dates: start: 20090101

REACTIONS (1)
  - CLOSTRIDIUM DIFFICILE COLITIS [None]
